FAERS Safety Report 7387198-0 (Version None)
Quarter: 2011Q1

REPORT INFORMATION
  Report Type: 
  Country: None (occurrence: None)
  Receive Date: 20110331
  Receipt Date: 20110324
  Transmission Date: 20110831
  Serious: Yes (Other)
  Sender: FDA-Public Use
  Company Number: B0709131A

PATIENT
  Sex: Female
  Weight: 50 kg

DRUGS (16)
  1. UNKNOWN DRUG [Concomitant]
     Indication: HYPERTENSION
     Dates: start: 20110221
  2. UNKNOWN DRUG [Concomitant]
  3. AUGMENTIN [Concomitant]
     Indication: COUGH
     Dosage: 1G TWICE PER DAY
     Dates: start: 20110221, end: 20110223
  4. TRIFLUCAN [Concomitant]
     Dosage: 100MG THREE TIMES PER DAY
     Dates: start: 20110223
  5. IMODIUM [Concomitant]
     Dosage: 2MG AS REQUIRED
     Dates: start: 20110226, end: 20110228
  6. DOCETAXEL [Suspect]
     Dosage: 112.5MG PER DAY
     Route: 042
     Dates: start: 20110216
  7. UNKNOWN DRUG [Concomitant]
     Dates: start: 20110223
  8. LAPATINIB [Suspect]
     Dosage: 8750MG CUMULATIVE DOSE
     Route: 048
     Dates: start: 20110216
  9. ZOPHREN [Concomitant]
     Dosage: 8MG PER DAY
     Route: 042
     Dates: start: 20110216, end: 20110216
  10. VOGALENE [Concomitant]
     Dosage: 2TAB THREE TIMES PER DAY
  11. CIFLOX [Concomitant]
     Indication: MICTURITION DISORDER
  12. XANAX [Concomitant]
     Dosage: 1TAB PER DAY
     Dates: start: 20110220, end: 20110221
  13. ZYRTEC [Concomitant]
     Dates: start: 20110302
  14. XANAX [Concomitant]
     Indication: CHEMOTHERAPY
     Dosage: 1TAB TWICE PER DAY
     Dates: start: 20110216, end: 20110219
  15. ZOPHREN [Concomitant]
     Dosage: 8MG AS REQUIRED
     Dates: start: 20110217
  16. CIFLOX [Concomitant]
     Indication: INFECTION PROPHYLAXIS
     Dosage: 500MG TWICE PER DAY
     Dates: start: 20110223, end: 20110223

REACTIONS (1)
  - NEUTROPENIA [None]
